FAERS Safety Report 25671975 (Version 3)
Quarter: 2025Q3

REPORT INFORMATION
  Report Type: Report from Study
  Country: US (occurrence: US)
  Receive Date: 20250812
  Receipt Date: 20250823
  Transmission Date: 20251021
  Serious: Yes (Hospitalization)
  Sender: ABBVIE
  Company Number: US-ABBVIE-6403737

PATIENT
  Age: 49 Year
  Sex: Male

DRUGS (3)
  1. VYALEV [Suspect]
     Active Substance: FOSCARBIDOPA\FOSLEVODOPA
     Indication: Parkinson^s disease
     Route: 058
     Dates: start: 20250409, end: 202508
  2. VYALEV [Suspect]
     Active Substance: FOSCARBIDOPA\FOSLEVODOPA
     Route: 058
     Dates: start: 202508
  3. VYALEV [Suspect]
     Active Substance: FOSCARBIDOPA\FOSLEVODOPA
     Route: 058

REACTIONS (7)
  - Urinary tract infection [Not Recovered/Not Resolved]
  - Diverticulitis [Recovered/Resolved]
  - Swelling [Unknown]
  - Prostate infection [Unknown]
  - Cystitis [Recovered/Resolved]
  - Kidney infection [Unknown]
  - Catheter site nodule [Not Recovered/Not Resolved]

NARRATIVE: CASE EVENT DATE: 20250101
